FAERS Safety Report 4636984-6 (Version None)
Quarter: 2005Q2

REPORT INFORMATION
  Report Type: 
  Country: None (occurrence: None)
  Receive Date: 20050414
  Receipt Date: 20050405
  Transmission Date: 20051028
  Serious: Yes (Death, Other)
  Sender: FDA-Public Use
  Company Number: USA-2005-0019339

PATIENT
  Age: 34 Year
  Sex: Female

DRUGS (3)
  1. OXYCONTIN [Suspect]
     Indication: FIBROMYALGIA
  2. HYDROCODONE BITARTRATE [Suspect]
     Indication: FIBROMYALGIA
  3. SKELAXIN [Suspect]

REACTIONS (13)
  - ABDOMINAL PAIN [None]
  - ANXIETY [None]
  - CARDIAC ARREST [None]
  - CONVULSION [None]
  - DRUG DEPENDENCE [None]
  - DRUG TOXICITY [None]
  - FIBROMYALGIA [None]
  - HEADACHE [None]
  - MULTIPLE DRUG OVERDOSE ACCIDENTAL [None]
  - MYALGIA [None]
  - NAUSEA [None]
  - PAIN [None]
  - VOMITING [None]
